FAERS Safety Report 10177923 (Version 1)
Quarter: 2014Q2

REPORT INFORMATION
  Report Type: Spontaneous
  Country: US (occurrence: US)
  Receive Date: 20140516
  Receipt Date: 20140516
  Transmission Date: 20141212
  Serious: Yes (Death, Other)
  Sender: FDA-Public Use
  Company Number: PHEH2014US009755

PATIENT
  Age: 58 Year
  Sex: Male
  Weight: 95.9 kg

DRUGS (2)
  1. GLEEVEC [Suspect]
     Dosage: UNK UKN, UNK
  2. TASIGNA [Suspect]
     Indication: CHRONIC MYELOID LEUKAEMIA
     Dosage: 400 MG, BID
     Route: 048

REACTIONS (2)
  - Sudden death [Fatal]
  - Dyspnoea [Unknown]
